FAERS Safety Report 9251657 (Version 1)
Quarter: 2013Q2

REPORT INFORMATION
  Report Type: Spontaneous
  Country: US (occurrence: US)
  Receive Date: 20130424
  Receipt Date: 20130424
  Transmission Date: 20140414
  Serious: No
  Sender: FDA-Public Use
  Company Number: US-PFIZER INC-2013124074

PATIENT
  Sex: Female

DRUGS (2)
  1. ZOLOFT [Suspect]
     Dosage: 25 MG, UNK
     Dates: start: 20130207, end: 2013
  2. ZOLOFT [Suspect]
     Dosage: 50 MG, UNK
     Dates: start: 20130418

REACTIONS (2)
  - Drug ineffective [Unknown]
  - Depression [Unknown]
